FAERS Safety Report 7388962-4 (Version None)
Quarter: 2011Q2

REPORT INFORMATION
  Report Type: 
  Country: None (occurrence: None)
  Receive Date: 20110401
  Receipt Date: 20110321
  Transmission Date: 20111010
  Serious: Yes (Hospitalization)
  Sender: FDA-Public Use
  Company Number: GB-SANOFI-AVENTIS-2011SA017150

PATIENT
  Age: 66 Year
  Sex: Male

DRUGS (10)
  1. METHOTREXATE [Concomitant]
  2. VITAMIN B [Concomitant]
  3. CARBOCISTEINE [Concomitant]
  4. LEVOTHYROXINE SODIUM [Concomitant]
  5. LEFLUNOMIDE [Suspect]
  6. PREDNISOLONE [Concomitant]
  7. ALENDRONIC ACID [Concomitant]
  8. ASPIRIN [Concomitant]
  9. THIAMINE [Concomitant]
  10. SIMVASTATIN [Concomitant]

REACTIONS (1)
  - PROGRESSIVE MULTIFOCAL LEUKOENCEPHALOPATHY [None]
